FAERS Safety Report 9466659 (Version 2)
Quarter: 2013Q3

REPORT INFORMATION
  Report Type: Report from Study
  Country: US (occurrence: US)
  Receive Date: 20130820
  Receipt Date: 20130903
  Transmission Date: 20140515
  Serious: Yes (Hospitalization, Other)
  Sender: FDA-Public Use
  Company Number: US-BRISTOL-MYERS SQUIBB COMPANY-19192624

PATIENT
  Age: 48 Year
  Sex: Female
  Weight: 41.3 kg

DRUGS (1)
  1. IPILIMUMAB [Suspect]
     Indication: CERVIX CARCINOMA
     Dosage: RECENT DOSE 1AUG13?TOTAL DOSE 123MG
     Route: 042
     Dates: start: 20130328

REACTIONS (5)
  - Cognitive disorder [Recovered/Resolved]
  - Urosepsis [Recovered/Resolved]
  - Anaemia [Recovered/Resolved]
  - Hypocalcaemia [Recovered/Resolved]
  - Hypokalaemia [Recovered/Resolved]
